FAERS Safety Report 5143854-6 (Version None)
Quarter: 2006Q4

REPORT INFORMATION
  Report Type: 
  Country: None (occurrence: None)
  Receive Date: 20061106
  Receipt Date: 20061005
  Transmission Date: 20070319
  Serious: Yes (Death, Hospitalization)
  Sender: FDA-Public Use
  Company Number: PHMT2006CA01924

PATIENT
  Age: 61 Year
  Sex: Male

DRUGS (6)
  1. FLURAZEPAM [Concomitant]
     Dosage: 15 MG, QHS
  2. LAMOTRIGINE [Concomitant]
     Dosage: 100 MG, BID
  3. OXYBUTYNIN [Concomitant]
     Dosage: 5 MG, BID
  4. ZYPREXA [Concomitant]
     Dosage: 20 MG QD
  5. PROCYCLIDINE HYDROCHLORIDE 2MG TAB [Concomitant]
     Dosage: 5 MG, BID
  6. CLOZARIL [Suspect]
     Indication: SCHIZOPHRENIA
     Dosage: 300 MG BID
     Route: 048
     Dates: start: 19990101, end: 20060901

REACTIONS (9)
  - ABDOMINAL DISTENSION [None]
  - ABDOMINAL PAIN [None]
  - ASPIRATION [None]
  - CONSTIPATION [None]
  - FAECALOMA [None]
  - INTESTINAL OBSTRUCTION [None]
  - LOBAR PNEUMONIA [None]
  - SEPSIS [None]
  - VOMITING [None]
